FAERS Safety Report 9571906 (Version 2)
Quarter: 2013Q4

REPORT INFORMATION
  Report Type: Spontaneous
  Country: IT (occurrence: None)
  Receive Date: 20130927
  Receipt Date: 20131011
  Transmission Date: 20140711
  Serious: Yes (Other)
  Sender: FDA-Public Use
  Company Number: ACO_38721_2013

PATIENT
  Sex: Male

DRUGS (2)
  1. FAMPYRA [Suspect]
     Indication: MULTIPLE SCLEROSIS
     Route: 048
  2. MOTRIN (IBUPROFEN) [Concomitant]

REACTIONS (1)
  - Loss of consciousness [None]
